FAERS Safety Report 23077799 (Version 1)
Quarter: 2023Q4

REPORT INFORMATION
  Report Type: Spontaneous
  Country: US (occurrence: US)
  Receive Date: 20231018
  Receipt Date: 20231018
  Transmission Date: 20240110
  Serious: Yes (Hospitalization, Other)
  Sender: FDA-Public Use
  Company Number: US-AUROBINDO-AUR-APL-2023-063367

PATIENT
  Age: 8 Year
  Sex: Female

DRUGS (23)
  1. METHYLPREDNISOLONE [Suspect]
     Active Substance: METHYLPREDNISOLONE
     Indication: Inflammation
     Dosage: 1000 MILLIGRAM ON POD 3
     Route: 042
  2. METHYLPREDNISOLONE [Suspect]
     Active Substance: METHYLPREDNISOLONE
     Dosage: 750 MILLIGRAM (REDUCED) ON POD 6
     Route: 042
  3. METHYLPREDNISOLONE [Suspect]
     Active Substance: METHYLPREDNISOLONE
     Dosage: 500 MILLIGRAM (REDUCED) ON POD 7
     Route: 042
  4. METHYLPREDNISOLONE [Suspect]
     Active Substance: METHYLPREDNISOLONE
     Dosage: 250 MILLIGRAM (REDUCED) ON POD 9
     Route: 042
  5. METHYLPREDNISOLONE [Suspect]
     Active Substance: METHYLPREDNISOLONE
     Dosage: 24 MILLIGRAM ON POD 11
     Route: 048
  6. METHYLPREDNISOLONE [Suspect]
     Active Substance: METHYLPREDNISOLONE
     Dosage: 20 MILLIGRAM ON POD 12
     Route: 048
  7. METHYLPREDNISOLONE [Suspect]
     Active Substance: METHYLPREDNISOLONE
     Dosage: 16 MILLIGRAM ON POD 13
     Route: 048
  8. METHYLPREDNISOLONE [Suspect]
     Active Substance: METHYLPREDNISOLONE
     Dosage: 12 MILLIGRAM ON POD 14
     Route: 048
  9. METHYLPREDNISOLONE [Suspect]
     Active Substance: METHYLPREDNISOLONE
     Dosage: 500 MILLIGRAM (REINSTITUTED) ON POD 22
     Route: 042
  10. VANCOMYCIN [Concomitant]
     Active Substance: VANCOMYCIN
     Indication: Eye infection
     Dosage: UNK
     Route: 065
  11. VANCOMYCIN [Concomitant]
     Active Substance: VANCOMYCIN
     Indication: Eye abscess
     Dosage: UNK (SECOND)
  12. VANCOMYCIN [Concomitant]
     Active Substance: VANCOMYCIN
     Dosage: UNK(THIRD)
  13. CEFTAZIDIME [Concomitant]
     Active Substance: CEFTAZIDIME
     Indication: Eye infection
     Dosage: UNK
     Route: 065
  14. CEFTAZIDIME [Concomitant]
     Active Substance: CEFTAZIDIME
     Indication: Eye abscess
     Dosage: UNK (SECOND)
  15. CEFTAZIDIME [Concomitant]
     Active Substance: CEFTAZIDIME
     Dosage: UNK (THIRD)
  16. DEXAMETHASONE [Concomitant]
     Active Substance: DEXAMETHASONE
     Indication: Eye infection
  17. DEXAMETHASONE [Concomitant]
     Active Substance: DEXAMETHASONE
     Indication: Eye abscess
  18. LINEZOLID [Concomitant]
     Active Substance: LINEZOLID
     Indication: Eye infection
     Dosage: UNK
     Route: 065
  19. LINEZOLID [Concomitant]
     Active Substance: LINEZOLID
     Indication: Eye abscess
  20. CEFEPIME [Concomitant]
     Active Substance: CEFEPIME HYDROCHLORIDE
     Indication: Eye infection
     Dosage: UNK
     Route: 065
  21. CEFEPIME [Concomitant]
     Active Substance: CEFEPIME HYDROCHLORIDE
     Indication: Eye abscess
  22. MEROPENEM [Concomitant]
     Active Substance: MEROPENEM
     Indication: Eye infection
     Dosage: UNK
     Route: 065
  23. MEROPENEM [Concomitant]
     Active Substance: MEROPENEM
     Indication: Eye abscess

REACTIONS (2)
  - Retinal vasculitis [Unknown]
  - Drug withdrawal syndrome [Unknown]
